FAERS Safety Report 6657993-1 (Version None)
Quarter: 2010Q1

REPORT INFORMATION
  Report Type: 
  Country: None (occurrence: None)
  Receive Date: 20100330
  Receipt Date: 20100318
  Transmission Date: 20100710
  Serious: Yes (Hospitalization)
  Sender: FDA-Public Use
  Company Number: JP-PFIZER INC-2010039568

PATIENT
  Age: 20 Year
  Sex: Female

DRUGS (1)
  1. AMLODIPINE BESYLATE [Suspect]
     Dosage: 100 MG, SINGLE
     Route: 048

REACTIONS (7)
  - BLOOD PRESSURE SYSTOLIC DECREASED [None]
  - DEPRESSED LEVEL OF CONSCIOUSNESS [None]
  - HYPOTHERMIA [None]
  - MOUTH BREATHING [None]
  - OVERDOSE [None]
  - RESPIRATORY RATE DECREASED [None]
  - VASODILATION PROCEDURE [None]
